FAERS Safety Report 19947208 (Version 1)
Quarter: 2021Q4

REPORT INFORMATION
  Report Type: Spontaneous
  Country: CZ (occurrence: CZ)
  Receive Date: 20211012
  Receipt Date: 20211012
  Transmission Date: 20220303
  Serious: Yes (Death, Life-Threatening, Other)
  Sender: FDA-Public Use
  Company Number: CZ-GLAXOSMITHKLINE-CZ2021EME124547

PATIENT
  Age: 34 Year
  Sex: Female

DRUGS (4)
  1. SUMATRIPTAN [Interacting]
     Active Substance: SUMATRIPTAN
     Indication: Headache
     Dosage: UNK
  2. CIPRALEX [Interacting]
     Active Substance: ESCITALOPRAM OXALATE
     Indication: Anxiety disorder
     Dosage: UNK
  3. ATENOLOL [Suspect]
     Active Substance: ATENOLOL
     Indication: Hypertension
     Dosage: UNK
  4. CINNARIZINE [Concomitant]
     Active Substance: CINNARIZINE
     Indication: Migraine
     Dosage: UNK

REACTIONS (10)
  - Aortic dissection [Fatal]
  - Serotonin syndrome [Unknown]
  - Loss of consciousness [Unknown]
  - Potentiating drug interaction [Unknown]
  - Cyanosis [Unknown]
  - Exposure during pregnancy [Unknown]
  - Hypertension [Unknown]
  - Chest pain [Unknown]
  - Overdose [Unknown]
  - Dyspnoea [Unknown]
